FAERS Safety Report 9781656 (Version 4)
Quarter: 2017Q2

REPORT INFORMATION
  Report Type: Spontaneous
  Country: CH (occurrence: CH)
  Receive Date: 20131224
  Receipt Date: 20170609
  Transmission Date: 20170830
  Serious: Yes (Life-Threatening, Hospitalization, Other)
  Sender: FDA-Public Use
  Company Number: CH-GILEAD-2013-0090113

PATIENT
  Age: 66 Year
  Sex: Male
  Weight: 67 kg

DRUGS (4)
  1. TRUVADA [Suspect]
     Active Substance: EMTRICITABINE\TENOFOVIR DISOPROXIL FUMARATE
     Indication: ASYMPTOMATIC HIV INFECTION
     Dosage: 445 MG, QD
     Route: 048
     Dates: start: 200703
  2. ADCETRIS [Suspect]
     Active Substance: BRENTUXIMAB VEDOTIN
     Indication: NON-HODGKIN^S LYMPHOMA
     Dosage: 120 MG, UNK
     Route: 041
     Dates: start: 20131031, end: 20131031
  3. KALETRA [Suspect]
     Active Substance: LOPINAVIR\RITONAVIR
     Indication: ASYMPTOMATIC HIV INFECTION
     Dosage: 500 MG, BID
     Route: 048
     Dates: start: 200703
  4. ADCETRIS [Suspect]
     Active Substance: BRENTUXIMAB VEDOTIN
     Indication: NON-HODGKIN^S LYMPHOMA

REACTIONS (9)
  - Abdominal pain upper [Recovering/Resolving]
  - Leukopenia [Recovered/Resolved]
  - Anaemia [Not Recovered/Not Resolved]
  - Hypokalaemia [Recovering/Resolving]
  - Chest pain [Recovering/Resolving]
  - Neutropenia [Recovering/Resolving]
  - Bicytopenia [Recovering/Resolving]
  - Hyponatraemia [Not Recovered/Not Resolved]
  - Constipation [Recovering/Resolving]

NARRATIVE: CASE EVENT DATE: 20131031
